FAERS Safety Report 19391675 (Version 1)
Quarter: 2021Q2

REPORT INFORMATION
  Report Type: Spontaneous
  Country: US (occurrence: US)
  Receive Date: 20210609
  Receipt Date: 20210609
  Transmission Date: 20210717
  Serious: No
  Sender: FDA-Public Use
  Company Number: US-SA-2021SA189427

PATIENT
  Sex: Female

DRUGS (17)
  1. ATROVENT HFA [Concomitant]
     Active Substance: IPRATROPIUM BROMIDE
  2. LORAZEPAM. [Concomitant]
     Active Substance: LORAZEPAM
  3. AZELASTINE. [Concomitant]
     Active Substance: AZELASTINE HYDROCHLORIDE
  4. SUCRALFATE. [Concomitant]
     Active Substance: SUCRALFATE
  5. CYCLOBENZAPRINE. [Concomitant]
     Active Substance: CYCLOBENZAPRINE
  6. HYDROXYZINE [Concomitant]
     Active Substance: HYDROXYZINE HYDROCHLORIDE
  7. METOPROLOL. [Concomitant]
     Active Substance: METOPROLOL
  8. PANTOPRAZOLE [Concomitant]
     Active Substance: PANTOPRAZOLE
  9. ONDANSETRON [Concomitant]
     Active Substance: ONDANSETRON
  10. LINZESS [Concomitant]
     Active Substance: LINACLOTIDE
  11. PREDNISONE. [Concomitant]
     Active Substance: PREDNISONE
  12. DUPIXENT [Suspect]
     Active Substance: DUPILUMAB
     Indication: SINUS POLYP
  13. MONTELUKAST SODIUM. [Concomitant]
     Active Substance: MONTELUKAST SODIUM
  14. PHENTERMINE. [Concomitant]
     Active Substance: PHENTERMINE
  15. DUPIXENT [Suspect]
     Active Substance: DUPILUMAB
     Indication: ASTHMA
     Route: 058
  16. ALBUTEROL SULFATE HFA [Concomitant]
     Active Substance: ALBUTEROL SULFATE
  17. TRETINOIN. [Concomitant]
     Active Substance: TRETINOIN

REACTIONS (3)
  - Asthma [Unknown]
  - Product use in unapproved indication [Unknown]
  - Product use issue [Unknown]
